FAERS Safety Report 8203267 (Version 7)
Quarter: 2013Q4

REPORT INFORMATION
  Report Type: Report from Study
  Country: None (occurrence: GB)
  Receive Date: 20111027
  Receipt Date: 20131113
  Transmission Date: 20140711
  Serious: Yes (Hospitalization)
  Sender: FDA-Public Use
  Company Number: GB-BAXTER-2011BH033115

PATIENT
  Age: 2 Year
  Sex: Female
  Weight: 13.1 kg

DRUGS (62)
  1. IFOSFAMIDE INJECTION 2G [Suspect]
     Indication: SARCOMA METASTATIC
     Route: 042
     Dates: start: 20110712
  2. IFOSFAMIDE INJECTION 2G [Suspect]
     Route: 042
     Dates: start: 20110809
  3. IFOSFAMIDE INJECTION 2G [Suspect]
     Route: 042
     Dates: start: 20111012
  4. IFOSFAMIDE INJECTION 2G [Suspect]
     Route: 042
     Dates: start: 20111124
  5. MESNA INJECTION [Suspect]
     Indication: SARCOMA METASTATIC
     Route: 042
     Dates: start: 20110712
  6. MESNA INJECTION [Suspect]
     Route: 042
     Dates: start: 20110712
  7. MESNA INJECTION [Suspect]
     Route: 042
     Dates: start: 20110712
  8. MESNA INJECTION [Suspect]
     Route: 042
     Dates: start: 20110809
  9. MESNA INJECTION [Suspect]
     Route: 065
     Dates: start: 20110921
  10. MESNA INJECTION [Suspect]
     Route: 042
     Dates: start: 20111012
  11. CYCLOPHOSPHAMIDE TABLETS 50 MG [Suspect]
     Indication: RHABDOMYOSARCOMA
     Route: 048
     Dates: start: 20120301
  12. CYCLOPHOSPHAMIDE TABLETS 50 MG [Suspect]
     Route: 048
     Dates: start: 20120907
  13. CYCLOPHOSPHAMIDE TABLETS 50 MG [Suspect]
     Route: 048
     Dates: start: 20120511
  14. CYCLOPHOSPHAMIDE TABLETS 50 MG [Suspect]
     Route: 048
     Dates: start: 20120623
  15. CYCLOPHOSPHAMIDE TABLETS 50 MG [Suspect]
     Route: 048
  16. NAVELBINE [Suspect]
     Indication: RHABDOMYOSARCOMA
     Route: 042
     Dates: start: 20120301
  17. NAVELBINE [Suspect]
     Route: 042
     Dates: start: 20120620
  18. BEVACIZUMAB [Suspect]
     Indication: SARCOMA METASTATIC
     Route: 042
     Dates: start: 20110712
  19. BEVACIZUMAB [Suspect]
     Route: 042
     Dates: start: 20110808
  20. BEVACIZUMAB [Suspect]
     Route: 042
     Dates: start: 20111001
  21. BEVACIZUMAB [Suspect]
     Route: 042
     Dates: start: 20120616
  22. VINCRISTINE [Suspect]
     Indication: SARCOMA METASTATIC
     Route: 042
     Dates: start: 20110712
  23. VINCRISTINE [Suspect]
     Route: 042
     Dates: start: 20110809
  24. VINCRISTINE [Suspect]
     Route: 042
     Dates: start: 20120815
  25. VINCRISTINE [Suspect]
     Route: 042
     Dates: start: 20111001
  26. VINCRISTINE [Suspect]
     Route: 042
     Dates: start: 20111123
  27. DOXORUBICIN [Suspect]
     Indication: SARCOMA METASTATIC
     Route: 042
     Dates: start: 20110712
  28. DOXORUBICIN [Suspect]
     Route: 042
     Dates: start: 20110809
  29. DOXORUBICIN [Suspect]
     Route: 042
     Dates: start: 20110831
  30. ACTINOMYCIN D [Suspect]
     Indication: SARCOMA METASTATIC
     Route: 042
     Dates: start: 20110712
  31. ACTINOMYCIN D [Suspect]
     Route: 042
     Dates: start: 20110809
  32. ACTINOMYCIN D [Suspect]
     Route: 042
     Dates: start: 20111001
  33. ACTINOMYCIN D [Suspect]
     Route: 042
     Dates: start: 20111123
  34. PARACETAMOL [Concomitant]
     Indication: PRODUCT USED FOR UNKNOWN INDICATION
     Route: 048
     Dates: start: 20110817
  35. PARACETAMOL [Concomitant]
     Indication: MUCOSAL INFLAMMATION
  36. ONDANSETRON [Concomitant]
     Indication: PRODUCT USED FOR UNKNOWN INDICATION
     Route: 048
     Dates: start: 20110901, end: 20110907
  37. ONDANSETRON [Concomitant]
     Route: 065
     Dates: start: 20110712
  38. ONDANSETRON [Concomitant]
     Route: 048
     Dates: start: 20120915
  39. ONDANSETRON [Concomitant]
     Route: 048
     Dates: start: 20110817
  40. ONDANSETRON [Concomitant]
     Route: 048
     Dates: start: 20111125, end: 20111129
  41. ONDANSETRON [Concomitant]
     Route: 048
     Dates: start: 20110927
  42. FLUCONAZOLE [Concomitant]
     Indication: PRODUCT USED FOR UNKNOWN INDICATION
     Route: 042
  43. CO-TRIMOXAZOLE [Concomitant]
     Indication: PRODUCT USED FOR UNKNOWN INDICATION
     Route: 048
     Dates: start: 20110716
  44. DOCUSATE SODIUM [Concomitant]
     Indication: PRODUCT USED FOR UNKNOWN INDICATION
     Route: 048
     Dates: start: 20110714
  45. DOCUSATE SODIUM [Concomitant]
     Route: 048
     Dates: start: 20111125
  46. DOCUSATE SODIUM [Concomitant]
     Route: 048
     Dates: start: 20111230
  47. GENTAMYCIN [Concomitant]
     Indication: PRODUCT USED FOR UNKNOWN INDICATION
     Route: 042
     Dates: start: 20110817, end: 20110824
  48. PIPERACILLIN/TAZOBACTAM [Concomitant]
     Indication: PRODUCT USED FOR UNKNOWN INDICATION
     Route: 042
     Dates: start: 20110817, end: 20110824
  49. MORPHINE [Concomitant]
     Indication: PRODUCT USED FOR UNKNOWN INDICATION
     Route: 048
     Dates: start: 20110817
  50. MOVICOL                            /01625101/ [Concomitant]
     Indication: PRODUCT USED FOR UNKNOWN INDICATION
     Route: 065
     Dates: start: 20110901, end: 20110907
  51. MOVICOL                            /01625101/ [Concomitant]
     Route: 004
     Dates: start: 20110820
  52. MOVICOL                            /01625101/ [Concomitant]
     Route: 065
     Dates: start: 20120326
  53. GRANULOCYTE COLONY-STIMULATING FACTOR NOS [Concomitant]
     Indication: PRODUCT USED FOR UNKNOWN INDICATION
     Route: 042
     Dates: start: 20110903
  54. GRANULOCYTE COLONY-STIMULATING FACTOR NOS [Concomitant]
     Route: 042
     Dates: start: 20110924
  55. DIHYDROCODEINE [Concomitant]
     Indication: PRODUCT USED FOR UNKNOWN INDICATION
     Route: 048
     Dates: start: 20110928
  56. TEMOZOLOMIDE [Concomitant]
     Indication: PRODUCT USED FOR UNKNOWN INDICATION
     Route: 065
     Dates: start: 20120915
  57. IRINOTECAN HYDROCHLORIDE [Concomitant]
     Indication: PRODUCT USED FOR UNKNOWN INDICATION
     Route: 065
     Dates: start: 20120915
  58. CEFIXIME [Concomitant]
     Indication: PRODUCT USED FOR UNKNOWN INDICATION
     Route: 065
     Dates: start: 20120417
  59. EMOLLIENT BASE [Concomitant]
     Indication: PRODUCT USED FOR UNKNOWN INDICATION
     Route: 065
     Dates: start: 20111012
  60. FILGRASTIM [Concomitant]
     Indication: PRODUCT USED FOR UNKNOWN INDICATION
     Route: 042
     Dates: start: 20110903
  61. LEVOMEPROMAZINE [Concomitant]
     Indication: PRODUCT USED FOR UNKNOWN INDICATION
     Route: 048
     Dates: start: 20110713
  62. LEVOMEPROMAZINE [Concomitant]
     Route: 042
     Dates: start: 20111125, end: 20111127

REACTIONS (12)
  - Febrile neutropenia [Recovered/Resolved]
  - Fungaemia [Recovered/Resolved]
  - Febrile neutropenia [Recovered/Resolved]
  - Mucosal inflammation [Recovered/Resolved]
  - Epistaxis [Recovered/Resolved]
  - Epistaxis [Recovered/Resolved]
  - Epistaxis [Recovered/Resolved]
  - Epistaxis [Recovered/Resolved]
  - Epistaxis [Recovered/Resolved]
  - Epistaxis [Recovered/Resolved]
  - Epistaxis [Recovered/Resolved]
  - Epistaxis [Recovered/Resolved]
